FAERS Safety Report 9731601 (Version 2)
Quarter: 2013Q4

REPORT INFORMATION
  Report Type: Report from Study
  Country: DE (occurrence: DE)
  Receive Date: 20131205
  Receipt Date: 20131205
  Transmission Date: 20140711
  Serious: Yes (Hospitalization)
  Sender: FDA-Public Use
  Company Number: DE-ROCHE-1289145

PATIENT
  Age: 57 Year
  Sex: Male
  Weight: 106 kg

DRUGS (3)
  1. CAPECITABINE [Suspect]
     Indication: RECTAL CANCER
     Dosage: MOST RECENT DOSE PRIOR TO EVENT ONSET 21/DEC/2010: 1500 MG.
     Route: 048
     Dates: start: 20101115
  2. GLIMEPIRIDE [Concomitant]
     Indication: TYPE 2 DIABETES MELLITUS
     Dosage: 1-0-1/2
     Route: 048
  3. TAVOR (GERMANY) [Concomitant]
     Indication: ANXIETY
     Route: 048

REACTIONS (1)
  - Incisional hernia [Recovered/Resolved]
